FAERS Safety Report 19371133 (Version 2)
Quarter: 2021Q2

REPORT INFORMATION
  Report Type: Spontaneous
  Country: US (occurrence: US)
  Receive Date: 20210603
  Receipt Date: 20210604
  Transmission Date: 20210717
  Serious: No
  Sender: FDA-Public Use
  Company Number: US-SA-2021SA176927

PATIENT
  Age: 34 Year
  Sex: Female

DRUGS (1)
  1. LANTUS [Suspect]
     Active Substance: INSULIN GLARGINE
     Dosage: 30 IU, QD
     Route: 065
     Dates: start: 2011

REACTIONS (4)
  - Device operational issue [Unknown]
  - Injection site mass [Unknown]
  - Injection site bruising [Unknown]
  - Maternal exposure during pregnancy [Unknown]
